FAERS Safety Report 5719492-0 (Version None)
Quarter: 2008Q2

REPORT INFORMATION
  Report Type: 
  Country: None (occurrence: None)
  Receive Date: 20080425
  Receipt Date: 20080425
  Transmission Date: 20081010
  Serious: Yes (Other)
  Sender: FDA-Public Use
  Company Number: None

PATIENT
  Age: 50 Year
  Sex: Female

DRUGS (1)
  1. ADRIAMYCIN 130 [Suspect]
     Indication: BREAST CANCER
     Dosage: 130 X ONCE IVP 1320-1328 (APPROX 1/3 OF DOSE GIVEN)
     Route: 042
     Dates: start: 20080117

REACTIONS (4)
  - FEELING HOT [None]
  - FLUSHING [None]
  - HEART RATE INCREASED [None]
  - INFUSION RELATED REACTION [None]
